FAERS Safety Report 6298775-2 (Version None)
Quarter: 2009Q3

REPORT INFORMATION
  Report Type: 
  Country: None (occurrence: None)
  Receive Date: 20090806
  Receipt Date: 20070717
  Transmission Date: 20100115
  Serious: Yes (Other)
  Sender: FDA-Public Use
  Company Number: US-ASTRAZENECA-2007UW09676

PATIENT
  Age: 634 Month
  Sex: Female
  Weight: 90.7 kg

DRUGS (15)
  1. SEROQUEL [Suspect]
     Indication: BIPOLAR DISORDER
     Dosage: 75-200MG
     Route: 048
     Dates: start: 20050328, end: 20051201
  2. SEROQUEL [Suspect]
     Dosage: 100 MG TO 200 MG
     Route: 048
     Dates: start: 20050528
  3. RISPERDAL [Concomitant]
     Dates: start: 20050514
  4. ZYRTEC [Concomitant]
     Dates: start: 20050408
  5. ZOCOR [Concomitant]
     Dates: start: 20050311
  6. AVAPRO [Concomitant]
     Dates: start: 20040112
  7. HYDROCHLOROTHIAZIDE [Concomitant]
     Dates: start: 20040120
  8. PREVACID [Concomitant]
     Dates: start: 20030121
  9. AMBIEN [Concomitant]
     Dates: start: 20010731
  10. CLONAZEPAM [Concomitant]
     Dates: start: 20030109
  11. METHADONE [Concomitant]
     Dates: start: 20021227
  12. EFFEXOR XR [Concomitant]
     Dosage: 75 MG TO 150 MG
     Dates: start: 20050617
  13. CELEBREX [Concomitant]
     Dates: start: 20010706
  14. BUPROPION HCL [Concomitant]
     Dates: start: 20050818
  15. FUROSEMIDE [Concomitant]
     Dates: start: 20051017

REACTIONS (2)
  - DIABETIC NEUROPATHY [None]
  - TYPE 2 DIABETES MELLITUS [None]
